FAERS Safety Report 6817502-0 (Version None)
Quarter: 2010Q3

REPORT INFORMATION
  Report Type: 
  Country: None (occurrence: None)
  Receive Date: 20100706
  Receipt Date: 20100624
  Transmission Date: 20110219
  Serious: Yes (Hospitalization)
  Sender: FDA-Public Use
  Company Number: B0661476A

PATIENT
  Sex: Female

DRUGS (7)
  1. PAXIL [Suspect]
     Indication: DEPRESSION
     Dosage: 10MG PER DAY
     Route: 048
     Dates: start: 20050621, end: 20100610
  2. NEODOPASOL [Concomitant]
     Indication: PARKINSON'S DISEASE
     Dosage: 300MG PER DAY
     Route: 048
     Dates: start: 20040816
  3. ASPIRIN [Concomitant]
     Indication: ANGINA PECTORIS
     Dosage: 100MG PER DAY
     Route: 048
  4. SUNRYTHM [Concomitant]
     Indication: ATRIAL FIBRILLATION
     Dosage: 50MG PER DAY
     Route: 048
  5. BLOPRESS [Concomitant]
     Indication: HYPERTENSION
     Dosage: 4MG PER DAY
     Route: 048
  6. ALTAT [Concomitant]
     Indication: GASTRIC ULCER
     Dosage: 150MG PER DAY
     Route: 048
  7. FERROMIA [Concomitant]
     Dosage: 100MG PER DAY
     Route: 048

REACTIONS (9)
  - BEDRIDDEN [None]
  - DEHYDRATION [None]
  - FEELING ABNORMAL [None]
  - HYPONATRAEMIA [None]
  - HYPOPHAGIA [None]
  - MOVEMENT DISORDER [None]
  - PARKINSONISM [None]
  - PNEUMONIA [None]
  - SOMNOLENCE [None]
